FAERS Safety Report 17146807 (Version 1)
Quarter: 2019Q4

REPORT INFORMATION
  Report Type: Spontaneous
  Country: US (occurrence: US)
  Receive Date: 20191120
  Receipt Date: 20191120
  Transmission Date: 20200122
  Serious: Yes (Death)
  Sender: FDA-Public Use
  Company Number: None

PATIENT
  Age: 82 Year
  Sex: Male

DRUGS (5)
  1. NITROSTAT [Concomitant]
     Active Substance: NITROGLYCERIN
  2. PRALUENT [Suspect]
     Active Substance: ALIROCUMAB
     Indication: CARDIAC DISORDER
  3. BETAPACE [Concomitant]
     Active Substance: SOTALOL HYDROCHLORIDE
  4. COUMADIN [Concomitant]
     Active Substance: WARFARIN SODIUM
  5. PRALUENT [Suspect]
     Active Substance: ALIROCUMAB
     Indication: HYPERLIPIDAEMIA
     Dosage: ?          OTHER FREQUENCY:EVERY 2 WEEKS;?
     Route: 058
     Dates: start: 20190204, end: 20191011

REACTIONS (1)
  - Myocardial infarction [None]
